FAERS Safety Report 10331285 (Version 1)
Quarter: 2014Q3

REPORT INFORMATION
  Report Type: Spontaneous
  Country: US (occurrence: None)
  Receive Date: 20140718
  Receipt Date: 20140718
  Transmission Date: 20150326
  Serious: Yes (Hospitalization, Other)
  Sender: FDA-Public Use
  Company Number: 2014VID00013

PATIENT
  Age: 5 Year
  Sex: Male
  Weight: 17 kg

DRUGS (5)
  1. AMOXICILLIN. [Concomitant]
     Active Substance: AMOXICILLIN
  2. ACTIMMUNE [Suspect]
     Active Substance: INTERFERON GAMMA-1B
     Indication: ILL-DEFINED DISORDER
     Route: 058
     Dates: start: 20100403
  3. SPORANOX [Concomitant]
     Active Substance: ITRACONAZOLE\SODIUM CHLORIDE
  4. BACTRIM [Concomitant]
     Active Substance: SULFAMETHOXAZOLE\TRIMETHOPRIM
  5. ALBUTEROL. [Concomitant]
     Active Substance: ALBUTEROL

REACTIONS (2)
  - Hospitalisation [None]
  - Off label use [None]

NARRATIVE: CASE EVENT DATE: 20100403
